FAERS Safety Report 11941489 (Version 1)
Quarter: 2016Q1

REPORT INFORMATION
  Report Type: Not Available
  Country: US (occurrence: US)
  Receive Date: 20160122
  Receipt Date: 20160122
  Transmission Date: 20160526
  Serious: Yes (Other)
  Sender: FDA-Public Use
  Company Number: US-GUTHY-RENKER LLC-1046825

PATIENT
  Sex: Female

DRUGS (5)
  1. PROACTIV DEEP CLEANSING WASH [Suspect]
     Active Substance: SALICYLIC ACID
     Route: 061
     Dates: start: 20150918, end: 20151028
  2. KIDNEY MEDICATION [Concomitant]
  3. PROACTIV PLUS RE-TEXTURIZING TONER [Suspect]
     Active Substance: GLYCOLIC ACID\SALICYLIC ACID
     Indication: ACNE
     Route: 061
     Dates: start: 20150918, end: 20151028
  4. PROACTIV PLUS SOOTHING SHAVE GEL [Suspect]
     Active Substance: BENZOYL PEROXIDE
     Route: 061
     Dates: start: 20150918, end: 20151028
  5. HEART MEDICATION [Concomitant]
     Active Substance: UNSPECIFIED INGREDIENT

REACTIONS (2)
  - Abscess neck [None]
  - Application site abscess [Recovering/Resolving]

NARRATIVE: CASE EVENT DATE: 20151028
